FAERS Safety Report 10136164 (Version 2)
Quarter: 2014Q2

REPORT INFORMATION
  Report Type: Spontaneous
  Country: GB (occurrence: GB)
  Receive Date: 20140429
  Receipt Date: 20140513
  Transmission Date: 20141212
  Serious: Yes (Hospitalization)
  Sender: FDA-Public Use
  Company Number: GB-DRREDDYS-GER/UKI/14/0039935

PATIENT
  Age: 31 Year
  Sex: Male

DRUGS (4)
  1. FLUOXETINE [Suspect]
     Indication: SCHIZOPHRENIA, PARANOID TYPE
  2. FLUOXETINE [Suspect]
     Indication: PSYCHOTIC DISORDER
  3. CLOZAPINE [Suspect]
     Indication: SCHIZOPHRENIA, PARANOID TYPE
     Route: 048
     Dates: end: 2009
  4. CLOZAPINE [Suspect]
     Indication: PSYCHOTIC DISORDER
     Route: 048

REACTIONS (7)
  - Anxiety [Recovering/Resolving]
  - Feeling abnormal [Recovering/Resolving]
  - Hallucination [Recovering/Resolving]
  - Incorrect dose administered [Unknown]
  - Paranoia [Recovering/Resolving]
  - Psychotic disorder [Recovering/Resolving]
  - Sedation [Recovering/Resolving]
